FAERS Safety Report 7537818-2 (Version None)
Quarter: 2011Q2

REPORT INFORMATION
  Report Type: 
  Country: None (occurrence: None)
  Receive Date: 20110609
  Receipt Date: 20110530
  Transmission Date: 20111010
  Serious: Yes (Hospitalization)
  Sender: FDA-Public Use
  Company Number: ES-BAXTER-2011BH017839

PATIENT
  Age: 68 Year
  Sex: Male

DRUGS (2)
  1. EXTRANEAL [Suspect]
     Indication: PERITONEAL DIALYSIS
     Route: 033
     Dates: end: 20110524
  2. EXTRANEAL [Suspect]
     Route: 033
     Dates: start: 20100930, end: 20110410

REACTIONS (6)
  - PERITONEAL CLOUDY EFFLUENT [None]
  - PSEUDOMONAS INFECTION [None]
  - ABDOMINAL PAIN [None]
  - URINARY TRACT INFECTION [None]
  - COMPLICATIONS OF TRANSPLANTED KIDNEY [None]
  - PYREXIA [None]
